FAERS Safety Report 9764047 (Version 1)
Quarter: 2013Q4

REPORT INFORMATION
  Report Type: Spontaneous
  Country: US (occurrence: US)
  Receive Date: 20131216
  Receipt Date: 20131216
  Transmission Date: 20140711
  Serious: No
  Sender: FDA-Public Use
  Company Number: US-BIOGENIDEC-2013BI110183

PATIENT
  Age: 55 Year
  Sex: Female

DRUGS (10)
  1. TECFIDERA [Suspect]
     Indication: MULTIPLE SCLEROSIS
     Route: 048
     Dates: start: 20130622
  2. TECFIDERA [Suspect]
     Indication: MULTIPLE SCLEROSIS
     Route: 048
  3. TEMAZEPAM [Concomitant]
  4. VITAMIN B [Concomitant]
  5. VITAMIN D [Concomitant]
  6. HYDROCHLORTHIAZIDE [Concomitant]
  7. BUSPIRONE HCL [Concomitant]
  8. PAROXETINE HCL [Concomitant]
  9. VASOTEC [Concomitant]
  10. GILENYA [Concomitant]

REACTIONS (2)
  - Weight increased [Unknown]
  - Flushing [Recovered/Resolved]
